FAERS Safety Report 23667026 (Version 1)
Quarter: 2024Q1

REPORT INFORMATION
  Report Type: Spontaneous
  Country: PL (occurrence: None)
  Receive Date: 20240325
  Receipt Date: 20240325
  Transmission Date: 20240409
  Serious: Yes (Other)
  Sender: FDA-Public Use
  Company Number: PL-Orion Corporation ORION PHARMA-SOLO2024-0008

PATIENT
  Age: 30 Year
  Sex: Male

DRUGS (10)
  1. METHYLPREDNISOLONE [Suspect]
     Active Substance: METHYLPREDNISOLONE
     Indication: Graft versus host disease
  2. METHOTREXATE [Suspect]
     Active Substance: METHOTREXATE
     Indication: Prophylaxis against graft versus host disease
     Dosage: SHORT COURSE
  3. METHOTREXATE [Suspect]
     Active Substance: METHOTREXATE
  4. METHOTREXATE [Suspect]
     Active Substance: METHOTREXATE
     Dosage: ANOTHER ATTEMPT
  5. MONTELUKAST [Suspect]
     Active Substance: MONTELUKAST SODIUM
     Indication: Graft versus host disease
  6. CYCLOSPORINE [Suspect]
     Active Substance: CYCLOSPORINE
     Indication: Prophylaxis against graft versus host disease
     Dosage: SHORT COURSE
  7. FLUTICASONE [Suspect]
     Active Substance: FLUTICASONE
     Indication: Graft versus host disease
  8. AZITHROMYCIN [Suspect]
     Active Substance: AZITHROMYCIN
     Indication: Graft versus host disease
  9. FLUDARABINE [Concomitant]
     Active Substance: FLUDARABINE PHOSPHATE
     Dosage: CONDITIONING
  10. MELPHALAN [Concomitant]
     Active Substance: MELPHALAN
     Dosage: CONDITIONING

REACTIONS (5)
  - Drug ineffective for unapproved indication [Unknown]
  - Product use in unapproved indication [Unknown]
  - Therapeutic product effect incomplete [Unknown]
  - Graft versus host disease [Not Recovered/Not Resolved]
  - Drug resistance [Unknown]
